FAERS Safety Report 12741306 (Version 1)
Quarter: 2016Q3

REPORT INFORMATION
  Report Type: Report from Study
  Country: US (occurrence: US)
  Receive Date: 20160914
  Receipt Date: 20160914
  Transmission Date: 20161109
  Serious: Yes (Hospitalization, Other)
  Sender: FDA-Public Use
  Company Number: US-ROCHE-1670321

PATIENT
  Age: 56 Year
  Sex: Female
  Weight: 48 kg

DRUGS (26)
  1. BEVACIZUMAB [Suspect]
     Active Substance: BEVACIZUMAB
     Dosage: IV OVER 30 - 90 MIN ON DAYS 1 AND 15?COURSE ID: 9
     Route: 042
     Dates: start: 20100811
  2. TEMSIROLIMUS [Suspect]
     Active Substance: TEMSIROLIMUS
     Dosage: IV ON DAYS 1, 8, 15, 22?COURSE ID: 6
     Route: 042
     Dates: start: 20100519
  3. TEMSIROLIMUS [Suspect]
     Active Substance: TEMSIROLIMUS
     Dosage: IV ON DAYS 1, 8, 15, 22?COURSE ID: 8
     Route: 042
     Dates: start: 20100714
  4. BEVACIZUMAB [Suspect]
     Active Substance: BEVACIZUMAB
     Indication: ENDOMETRIAL CANCER
     Dosage: IV OVER 30 - 90 MIN ON DAYS 1 AND 15?COURSE ID: 2
     Route: 042
     Dates: start: 20100120
  5. BEVACIZUMAB [Suspect]
     Active Substance: BEVACIZUMAB
     Dosage: IV OVER 30 - 90 MIN ON DAYS 1 AND 15?COURSE ID: 12
     Route: 042
     Dates: start: 20101110
  6. TEMSIROLIMUS [Suspect]
     Active Substance: TEMSIROLIMUS
     Indication: PANCREATIC NEUROENDOCRINE TUMOUR METASTATIC
     Dosage: IV ON DAYS 1, 8, 15, 22?COURSE: 1
     Route: 042
     Dates: start: 20091223
  7. TEMSIROLIMUS [Suspect]
     Active Substance: TEMSIROLIMUS
     Dosage: IV ON DAYS 1, 8, 15, 22?COURSE ID: 11
     Route: 042
     Dates: start: 20101013
  8. BEVACIZUMAB [Suspect]
     Active Substance: BEVACIZUMAB
     Dosage: IV OVER 30 - 90 MIN ON DAYS 1 AND 15?COURSE ID: 8
     Route: 042
     Dates: start: 20100714
  9. TEMSIROLIMUS [Suspect]
     Active Substance: TEMSIROLIMUS
     Dosage: IV ON DAYS 1, 8, 15, 22?COURSE ID: 7
     Route: 042
     Dates: start: 20100616
  10. BEVACIZUMAB [Suspect]
     Active Substance: BEVACIZUMAB
     Indication: MALIGNANT NEOPLASM OF ISLETS OF LANGERHANS
     Dosage: IV OVER 30 - 90 MIN ON DAYS 1 AND 15?COURSE ID: 5
     Route: 042
     Dates: start: 20100421
  11. LANTUS [Suspect]
     Active Substance: INSULIN GLARGINE
     Indication: PRODUCT USED FOR UNKNOWN INDICATION
     Route: 065
  12. TEMSIROLIMUS [Suspect]
     Active Substance: TEMSIROLIMUS
     Indication: ENDOMETRIAL CANCER
     Dosage: IV ON DAYS 1, 8, 15, 22?COURSE ID: 2
     Route: 042
     Dates: start: 20100120
  13. TEMSIROLIMUS [Suspect]
     Active Substance: TEMSIROLIMUS
     Indication: HEPATOCELLULAR CARCINOMA
     Dosage: IV ON DAYS 1, 8, 15, 22?COURSE ID: 4
     Route: 042
     Dates: start: 20100317
  14. TEMSIROLIMUS [Suspect]
     Active Substance: TEMSIROLIMUS
     Indication: MALIGNANT NEOPLASM OF ISLETS OF LANGERHANS
     Dosage: IV ON DAYS 1, 8, 15, 22?COURSE ID: 5
     Route: 042
     Dates: start: 20100421
  15. TEMSIROLIMUS [Suspect]
     Active Substance: TEMSIROLIMUS
     Dosage: IV ON DAYS 1, 8, 15, 22?COURSE ID: 9
     Route: 042
     Dates: start: 20100811
  16. TEMSIROLIMUS [Suspect]
     Active Substance: TEMSIROLIMUS
     Dosage: IV ON DAYS 1, 8, 15, 22?COURSE ID: 12
     Route: 042
     Dates: start: 20101110
  17. BEVACIZUMAB [Suspect]
     Active Substance: BEVACIZUMAB
     Dosage: IV OVER 30 - 90 MIN ON DAYS 1 AND 15?COURSE ID: 10
     Route: 042
     Dates: start: 20100915
  18. BEVACIZUMAB [Suspect]
     Active Substance: BEVACIZUMAB
     Dosage: IV OVER 30 - 90 MIN ON DAYS 1 AND 15?COURSE ID: 11
     Route: 042
     Dates: start: 20101013
  19. TEMSIROLIMUS [Suspect]
     Active Substance: TEMSIROLIMUS
     Dosage: IV ON DAYS 1, 8, 15, 22?COURSE ID: 10
     Route: 042
     Dates: start: 20100915
  20. TEMSIROLIMUS [Suspect]
     Active Substance: TEMSIROLIMUS
     Indication: OVARIAN CANCER
     Dosage: IV ON DAYS 1, 8, 15, 22?COURSE ID: 3
     Route: 042
     Dates: start: 20100217
  21. BEVACIZUMAB [Suspect]
     Active Substance: BEVACIZUMAB
     Indication: PANCREATIC NEUROENDOCRINE TUMOUR METASTATIC
     Dosage: IV OVER 30 - 90 MIN ON DAYS 1 AND 15?COURSE ID: 1
     Route: 042
     Dates: start: 20091223
  22. BEVACIZUMAB [Suspect]
     Active Substance: BEVACIZUMAB
     Indication: OVARIAN CANCER
     Dosage: IV OVER 30 - 90 MIN ON DAYS 1 AND 15?COURSE ID: 3
     Route: 042
     Dates: start: 20100217
  23. BEVACIZUMAB [Suspect]
     Active Substance: BEVACIZUMAB
     Indication: HEPATOCELLULAR CARCINOMA
     Dosage: IV OVER 30 - 90 MIN ON DAYS 1 AND 15?COURSE ID: 4
     Route: 042
     Dates: start: 20100317
  24. BEVACIZUMAB [Suspect]
     Active Substance: BEVACIZUMAB
     Dosage: IV OVER 30 - 90 MIN ON DAYS 1 AND 15?COURSE ID: 6
     Route: 042
     Dates: start: 20100519
  25. BEVACIZUMAB [Suspect]
     Active Substance: BEVACIZUMAB
     Dosage: IV OVER 30 - 90 MIN ON DAYS 1 AND 15?COURSE ID: 7
     Route: 042
     Dates: start: 20100616
  26. NOVOLOG [Suspect]
     Active Substance: INSULIN ASPART
     Indication: PRODUCT USED FOR UNKNOWN INDICATION
     Route: 065

REACTIONS (9)
  - Neutrophil count decreased [Unknown]
  - Hypoglycaemia [Recovered/Resolved]
  - Aspartate aminotransferase increased [Unknown]
  - Hyperglycaemia [Unknown]
  - Hyperglycaemia [Recovered/Resolved]
  - Blood alkaline phosphatase increased [Unknown]
  - Hyponatraemia [Unknown]
  - Hypoglycaemia [Unknown]
  - Pulmonary haemorrhage [Unknown]

NARRATIVE: CASE EVENT DATE: 20100505
